FAERS Safety Report 4724616-8 (Version None)
Quarter: 2005Q3

REPORT INFORMATION
  Report Type: 
  Country: None (occurrence: None)
  Receive Date: 20050726
  Receipt Date: 20050713
  Transmission Date: 20060218
  Serious: Yes (Hospitalization)
  Sender: FDA-Public Use
  Company Number: US-GLAXOSMITHKLINE-A0566037A

PATIENT
  Age: 75 Year
  Sex: Female
  Weight: 75 kg

DRUGS (11)
  1. NICORETTE [Suspect]
     Route: 002
     Dates: start: 20041224
  2. DEMADEX [Concomitant]
     Indication: DIURETIC THERAPY
     Route: 048
  3. MULTI-VITAMIN [Concomitant]
     Route: 048
  4. TOPROL-XL [Concomitant]
     Route: 048
  5. LIPITOR [Concomitant]
     Indication: BLOOD CHOLESTEROL INCREASED
     Route: 048
  6. FLONASE [Concomitant]
     Indication: MULTIPLE ALLERGIES
     Route: 055
  7. ALBUTEROL [Concomitant]
     Route: 055
  8. NORVASC [Concomitant]
     Route: 048
  9. ASPIRIN [Concomitant]
     Route: 048
  10. FISH OIL [Concomitant]
     Route: 048
  11. GARLIC [Concomitant]

REACTIONS (7)
  - DIZZINESS [None]
  - DRUG ABUSER [None]
  - ERYTHEMA [None]
  - FALL [None]
  - INTENTIONAL MISUSE [None]
  - LOSS OF CONSCIOUSNESS [None]
  - RHEUMATOID FACTOR POSITIVE [None]
